FAERS Safety Report 26173473 (Version 1)
Quarter: 2025Q4

REPORT INFORMATION
  Report Type: Spontaneous
  Country: EU (occurrence: EU)
  Receive Date: 20251218
  Receipt Date: 20251218
  Transmission Date: 20260117
  Serious: Yes (Other)
  Sender: AUROBINDO
  Company Number: EU-INFARMED-J202511-963

PATIENT
  Age: 40 Year
  Sex: Female

DRUGS (1)
  1. OXALIPLATIN [Suspect]
     Active Substance: OXALIPLATIN
     Indication: Adenocarcinoma gastric
     Dosage: 43 MILLIGRAM/SQ. METER (OXALIPLATINA (43MG/M2 E COM TEMPO DE PERFUS?O AUMENTADO PARA 4H) INSERIDA EM ESQUEMA FOLFOX (TODAS AS DOSES REDUZIDAS EM 50%).)

REACTIONS (5)
  - Feeling hot [Recovered/Resolved]
  - Hypoaesthesia oral [Recovered/Resolved]
  - Nausea [Recovered/Resolved]
  - Palmar erythema [Recovered/Resolved]
  - Salivary hypersecretion [Recovered/Resolved]

NARRATIVE: CASE EVENT DATE: 20251015
